FAERS Safety Report 23876651 (Version 3)
Quarter: 2024Q3

REPORT INFORMATION
  Report Type: Spontaneous
  Country: CA (occurrence: CA)
  Receive Date: 20240521
  Receipt Date: 20240717
  Transmission Date: 20241016
  Serious: Yes (Death, Other)
  Sender: CELLTRION
  Company Number: CA-PFIZER INC-PV202300202001

PATIENT

DRUGS (4)
  1. INFLECTRA [Suspect]
     Active Substance: INFLIXIMAB-DYYB
     Indication: Crohn^s disease
     Dosage: UNK
     Route: 042
  2. INFLECTRA [Suspect]
     Active Substance: INFLIXIMAB-DYYB
     Dosage: UNK
     Route: 042
  3. INFLECTRA [Suspect]
     Active Substance: INFLIXIMAB-DYYB
     Dosage: UNK
     Route: 042
  4. INFLECTRA [Suspect]
     Active Substance: INFLIXIMAB-DYYB
     Dosage: 550 MG, EVERY 6 WEEK
     Route: 042
     Dates: start: 20220510, end: 20240416

REACTIONS (2)
  - Road traffic accident [Fatal]
  - Sinusitis bacterial [Unknown]

NARRATIVE: CASE EVENT DATE: 20231101
